FAERS Safety Report 10199984 (Version 3)
Quarter: 2014Q2

REPORT INFORMATION
  Report Type: Spontaneous
  Country: US (occurrence: US)
  Receive Date: 20140527
  Receipt Date: 20140623
  Transmission Date: 20141212
  Serious: Yes (Other)
  Sender: FDA-Public Use
  Company Number: US-B.I. PHARMACEUTICALS,INC./RIDGEFIELD-2014-BI-22406BP

PATIENT
  Sex: Female

DRUGS (21)
  1. COMBIVENT [Suspect]
     Indication: BRONCHITIS CHRONIC
     Dosage: DOSE PER APPLICATION: 18 MCG / 103 MCG; DAILY DOSE: 144 MCG / 824 MCG
     Route: 055
     Dates: start: 2000, end: 201307
  2. COMBIVENT [Suspect]
     Indication: BRONCHITIS CHRONIC
     Route: 065
     Dates: start: 2003
  3. COMBIVENT [Suspect]
     Route: 065
     Dates: start: 2007
  4. COMBIVENT [Suspect]
     Dosage: DOSE PER APPLICATION: 20 MCG / 100 MCG; DAILY DOSE: 80 MCG / 400 MCG
     Route: 055
     Dates: start: 201307
  5. AGGRENOX [Suspect]
     Indication: CEREBROVASCULAR ACCIDENT PROPHYLAXIS
     Route: 065
     Dates: start: 2008
  6. AGGRENOX [Suspect]
     Dosage: DOSE PER APPLICATION:  25 MG / 200 MG; DAILY DOSE: 50 MG / 400 MG
     Route: 048
     Dates: start: 201209, end: 201404
  7. CHEMOTHERAPY [Concomitant]
     Indication: COLON CANCER
     Route: 065
  8. RADIATION [Concomitant]
     Indication: COLON CANCER
     Route: 065
  9. OMEPRAZOLE [Concomitant]
     Route: 065
  10. ZOLPIDEM [Concomitant]
     Route: 065
  11. LORAZEPAM [Concomitant]
     Dosage: 1.5 MG
     Route: 065
  12. ASPIRIN [Concomitant]
     Dosage: 81 MG
     Route: 065
  13. GARLIC [Concomitant]
     Route: 065
  14. GREEN TEA [Concomitant]
     Route: 065
  15. CALCIUM CARBONATE [Concomitant]
     Dosage: 600 MG
     Route: 065
  16. VITAMIN B12 [Concomitant]
     Route: 065
  17. VITAMIN B COMPLEX [Concomitant]
     Route: 065
  18. VITAMIN C [Concomitant]
     Dosage: 1000 MG
     Route: 065
  19. MULTIVITAMIN [Concomitant]
     Dosage: 1 ANZ
     Route: 065
  20. OMEGA-3 FISH OIL [Concomitant]
     Route: 065
  21. LORATIDINE [Concomitant]
     Dosage: 10 MG
     Route: 065

REACTIONS (5)
  - Brain cancer metastatic [Not Recovered/Not Resolved]
  - Hepatic cancer [Not Recovered/Not Resolved]
  - Amnesia [Recovered/Resolved]
  - Asthenia [Not Recovered/Not Resolved]
  - Hypoaesthesia [Not Recovered/Not Resolved]
